FAERS Safety Report 24604761 (Version 3)
Quarter: 2025Q1

REPORT INFORMATION
  Report Type: Spontaneous
  Country: AU (occurrence: AU)
  Receive Date: 20241111
  Receipt Date: 20250108
  Transmission Date: 20250408
  Serious: Yes (Other)
  Sender: TAKEDA
  Company Number: AU-TAKEDA-2024TUS111699

PATIENT
  Age: 29 Year
  Sex: Female

DRUGS (3)
  1. ENTYVIO [Suspect]
     Active Substance: VEDOLIZUMAB
     Indication: Colitis ulcerative
  2. UPADACITINIB HEMIHYDRATE [Suspect]
     Active Substance: UPADACITINIB HEMIHYDRATE
     Indication: Product used for unknown indication
  3. USTEKINUMAB [Suspect]
     Active Substance: USTEKINUMAB
     Indication: Product used for unknown indication
     Dosage: UNK UNK, Q4WEEKS

REACTIONS (3)
  - Colitis ulcerative [Unknown]
  - Lower respiratory tract infection [Unknown]
  - Pulmonary mass [Unknown]
